FAERS Safety Report 6685248-8 (Version None)
Quarter: 2010Q2

REPORT INFORMATION
  Report Type: 
  Country: None (occurrence: None)
  Receive Date: 20100416
  Receipt Date: 20100408
  Transmission Date: 20101027
  Serious: Yes (Other)
  Sender: FDA-Public Use
  Company Number: US-GENENTECH-288004

PATIENT
  Sex: Female
  Weight: 24 kg

DRUGS (1)
  1. SOMATROPIN [Suspect]
     Indication: TURNER'S SYNDROME
     Dosage: 0.6 MG, QD
     Route: 058
     Dates: start: 20041115

REACTIONS (1)
  - JUVENILE ARTHRITIS [None]
